FAERS Safety Report 11644617 (Version 1)
Quarter: 2015Q4

REPORT INFORMATION
  Report Type: Spontaneous
  Country: FR (occurrence: FR)
  Receive Date: 20151020
  Receipt Date: 20151020
  Transmission Date: 20160304
  Serious: Yes (Death)
  Sender: FDA-Public Use
  Company Number: FR-SA-2015SA163676

PATIENT
  Age: 54 Year
  Sex: Female

DRUGS (11)
  1. THYMOGLOBULINE [Suspect]
     Active Substance: LAPINE T-LYMPHOCYTE IMMUNE GLOBULIN
     Indication: PROPHYLAXIS AGAINST TRANSPLANT REJECTION
     Dosage: ROUTE- IV INFUSION
     Dates: start: 20150626, end: 20150626
  2. BACTRIM [Concomitant]
     Active Substance: SULFAMETHOXAZOLE\TRIMETHOPRIM
     Dates: start: 20150624
  3. ZELITREX [Concomitant]
     Active Substance: VALACYCLOVIR HYDROCHLORIDE
     Dates: start: 20150624
  4. PROPOFOL. [Concomitant]
     Active Substance: PROPOFOL
  5. THYMOGLOBULINE [Suspect]
     Active Substance: LAPINE T-LYMPHOCYTE IMMUNE GLOBULIN
     Indication: PROPHYLAXIS AGAINST TRANSPLANT REJECTION
     Dosage: IV INFUSION
     Dates: start: 20150624, end: 20150624
  6. RED BLOOD CELLS [Concomitant]
     Active Substance: HUMAN RED BLOOD CELL
     Dates: start: 20150624, end: 20150624
  7. COROTROPE [Concomitant]
     Active Substance: MILRINONE
     Dosage: 0,68 GAMMA
     Dates: start: 20150624
  8. COROTROPE [Concomitant]
     Active Substance: MILRINONE
     Dosage: 1,57 MCG/KG/MIN
     Dates: start: 20150626
  9. REMIFENTANIL [Concomitant]
     Active Substance: REMIFENTANIL
  10. RED BLOOD CELLS [Concomitant]
     Active Substance: HUMAN RED BLOOD CELL
     Dates: start: 20150625, end: 20150625
  11. NOREPINEPHRINE [Concomitant]
     Active Substance: NOREPINEPHRINE\NOREPINEPHRINE BITARTRATE
     Dosage: DOSE: 1,53 MCG/KG/MIN
     Dates: start: 20150624

REACTIONS (3)
  - Acute right ventricular failure [Fatal]
  - Multi-organ failure [Fatal]
  - Acute pulmonary oedema [Fatal]

NARRATIVE: CASE EVENT DATE: 20150626
